FAERS Safety Report 10670633 (Version 1)
Quarter: 2014Q4

REPORT INFORMATION
  Report Type: Spontaneous
  Country: JP (occurrence: JP)
  Receive Date: 20141223
  Receipt Date: 20141223
  Transmission Date: 20150529
  Serious: Yes (Other)
  Sender: FDA-Public Use
  Company Number: JP-TEVA-530297ISR

PATIENT
  Age: 26 Year
  Sex: Female

DRUGS (4)
  1. ADCIRCA [Concomitant]
     Active Substance: TADALAFIL
     Dosage: 20 MILLIGRAM DAILY;
     Route: 048
     Dates: start: 20141212
  2. WARFARIN [Concomitant]
     Active Substance: WARFARIN
     Dosage: 2 MILLIGRAM DAILY;
     Route: 048
     Dates: start: 20141213
  3. (TS)EPOPROSTENOL INTRAVENOUS 0.5MG ^TAIYO^, INJ, 0.5MG1VIAL [Suspect]
     Active Substance: EPOPROSTENOL
     Indication: PULMONARY ARTERIAL HYPERTENSION
     Dosage: UNIT DOSE: 4NG/KG/MIN
     Route: 042
     Dates: start: 20141210
  4. VOLIBRIS TABLETS [Concomitant]
     Dosage: 10 MILLIGRAM DAILY;
     Route: 048
     Dates: start: 20141212

REACTIONS (2)
  - Pyrexia [Not Recovered/Not Resolved]
  - Vitreous haemorrhage [Not Recovered/Not Resolved]

NARRATIVE: CASE EVENT DATE: 20141211
